FAERS Safety Report 24613756 (Version 1)
Quarter: 2024Q4

REPORT INFORMATION
  Report Type: Spontaneous
  Country: BG (occurrence: None)
  Receive Date: 20241113
  Receipt Date: 20241113
  Transmission Date: 20250115
  Serious: Yes (Hospitalization)
  Sender: Public
  Company Number: None

PATIENT
  Age: 51 Year
  Sex: Male
  Weight: 102 kg

DRUGS (4)
  1. DARAPRIM [Suspect]
     Active Substance: PYRIMETHAMINE
     Indication: Toxoplasmosis
     Dosage: OTHER QUANTITY : 2 TABLET(S);?FREQUENCY : TWICE A DAY;?
     Route: 048
     Dates: start: 20240926, end: 20241022
  2. BISEPTOL [Suspect]
     Active Substance: SULFAMETHOXAZOLE\TRIMETHOPRIM
  3. DOXYCYCLINE [Suspect]
     Active Substance: DOXYCYCLINE
  4. VALPROATE SODIUM [Concomitant]
     Active Substance: VALPROATE SODIUM

REACTIONS (15)
  - Toxoplasmosis [None]
  - Emotional distress [None]
  - Amnesia [None]
  - Disorientation [None]
  - Balance disorder [None]
  - Fall [None]
  - Staring [None]
  - Depression [None]
  - Anxiety [None]
  - Muscle disorder [None]
  - Pyrexia [None]
  - Tongue injury [None]
  - Syncope [None]
  - Adverse drug reaction [None]
  - Overdose [None]

NARRATIVE: CASE EVENT DATE: 20241015
